FAERS Safety Report 12556466 (Version 7)
Quarter: 2018Q1

REPORT INFORMATION
  Report Type: Report from Study
  Country: IT (occurrence: IT)
  Receive Date: 20160714
  Receipt Date: 20180104
  Transmission Date: 20180508
  Serious: Yes (Hospitalization)
  Sender: FDA-Public Use
  Company Number: IT-BAYER-2016-119477

PATIENT
  Age: 71 Year
  Sex: Female
  Weight: 79 kg

DRUGS (19)
  1. CARVASIN [Concomitant]
     Active Substance: ISOSORBIDE DINITRATE
     Dosage: 1 DF, QD
     Dates: start: 20160615
  2. LEVOPRAID (SULPIRIDE) [Concomitant]
     Active Substance: SULPIRIDE
     Dosage: 1 DF, QD
     Dates: start: 1945
  3. OPTRUMA [Concomitant]
     Active Substance: RALOXIFENE HYDROCHLORIDE
     Indication: PROPHYLAXIS
     Dosage: 1 DF, QD
     Dates: start: 1945
  4. STIVARGA [Suspect]
     Active Substance: REGORAFENIB
     Indication: COLON CANCER METASTATIC
     Dosage: 80 MG, QD
     Route: 048
     Dates: start: 20160819, end: 20160826
  5. SOLDESAM [Concomitant]
     Active Substance: DEXAMETHASONE
     Dosage: 32 DROPS
     Dates: start: 20130703, end: 20160908
  6. MOMENT 200 [Concomitant]
     Active Substance: IBUPROFEN
     Dosage: 1 DF, QD
     Dates: start: 1945
  7. IBUPROFENE [Concomitant]
     Active Substance: IBUPROFEN
     Dosage: 1 DF, QD
     Dates: start: 20160531
  8. PANITUMUMAB [Concomitant]
     Active Substance: PANITUMUMAB
     Dosage: UNK
     Dates: start: 201611
  9. TAVOR EXPIDET [Concomitant]
     Active Substance: LORAZEPAM
     Dosage: 1 MG, QD
     Dates: start: 1945
  10. STIVARGA [Suspect]
     Active Substance: REGORAFENIB
     Indication: COLON CANCER METASTATIC
     Dosage: 160 MG, QD
     Route: 048
     Dates: start: 20160615, end: 20160711
  11. COAPROVEL [Concomitant]
     Active Substance: HYDROCHLOROTHIAZIDE\IRBESARTAN
     Dosage: 0.5 QD
     Dates: start: 1945
  12. PANTORC [Concomitant]
     Active Substance: PANTOPRAZOLE SODIUM
     Indication: PROPHYLAXIS
     Dosage: 20 MG, QD
     Route: 048
     Dates: start: 1945
  13. AUGMENTIN [Concomitant]
     Active Substance: AMOXICILLIN\CLAVULANATE POTASSIUM
     Dosage: 2 G, QD
     Dates: start: 20170616, end: 20170624
  14. APROVEL [Concomitant]
     Active Substance: IRBESARTAN
  15. STIVARGA [Suspect]
     Active Substance: REGORAFENIB
     Indication: COLON CANCER METASTATIC
     Dosage: 40 MG, QD
     Route: 048
     Dates: start: 20160712, end: 20160818
  16. LEVOLAC [Concomitant]
     Active Substance: LACTULOSE
     Dosage: 1 MEASURE SPOON
     Dates: start: 20160616, end: 20160619
  17. STIVARGA [Suspect]
     Active Substance: REGORAFENIB
     Indication: COLON CANCER METASTATIC
     Dosage: 160 MG, QD
     Route: 048
     Dates: start: 20160523, end: 20160615
  18. FLUSPIRAL [Concomitant]
     Active Substance: FLUTICASONE PROPIONATE
     Dosage: 1 PUFF
     Dates: start: 1945
  19. PANTOPRAZOLE [Concomitant]
     Active Substance: PANTOPRAZOLE

REACTIONS (7)
  - Bone marrow toxicity [Recovered/Resolved]
  - Encephalopathy [Recovered/Resolved]
  - Vomiting [Recovered/Resolved]
  - Hepatotoxicity [Recovered/Resolved]
  - Hyperbilirubinaemia [Recovered/Resolved]
  - Confusional state [None]
  - Hypertension [Recovered/Resolved]

NARRATIVE: CASE EVENT DATE: 20160615
